FAERS Safety Report 4385454-1 (Version None)
Quarter: 2004Q2

REPORT INFORMATION
  Report Type: 
  Country: None (occurrence: None)
  Receive Date: 20040622
  Receipt Date: 20040603
  Transmission Date: 20050107
  Serious: Yes (Death, Hospitalization)
  Sender: FDA-Public Use
  Company Number: A03200401787

PATIENT
  Age: 84 Year
  Sex: Female

DRUGS (4)
  1. AMBIEN [Suspect]
     Indication: SLEEP DISORDER
     Dosage: ORAL
     Route: 048
     Dates: start: 20040301, end: 20040301
  2. OXYGEN [Concomitant]
  3. DONEPEZIL HCL [Concomitant]
  4. ANTIHYPERTENSIVE MEDICATIONS NOS [Concomitant]

REACTIONS (1)
  - DYSPNOEA [None]
